FAERS Safety Report 9648924 (Version 1)
Quarter: 2013Q4

REPORT INFORMATION
  Report Type: Spontaneous
  Country: GB (occurrence: GB)
  Receive Date: 20131028
  Receipt Date: 20131028
  Transmission Date: 20140711
  Serious: Yes (Death, Disabling)
  Sender: FDA-Public Use
  Company Number: GB-TEVA-440899USA

PATIENT
  Age: 71 Year
  Sex: Male

DRUGS (1)
  1. BENDAMUSTINE [Suspect]
     Indication: HODGKIN^S DISEASE
     Route: 042

REACTIONS (3)
  - Arrhythmia [Fatal]
  - Cardiac failure [Fatal]
  - Non-Hodgkin^s lymphoma [Fatal]
